FAERS Safety Report 20678046 (Version 4)
Quarter: 2022Q3

REPORT INFORMATION
  Report Type: Spontaneous
  Country: CA (occurrence: CA)
  Receive Date: 20220406
  Receipt Date: 20220704
  Transmission Date: 20221027
  Serious: Yes (Other)
  Sender: FDA-Public Use
  Company Number: CA-APOTEX-2022AP005563

PATIENT
  Sex: Female

DRUGS (2)
  1. MIDODRINE [Suspect]
     Active Substance: MIDODRINE
     Indication: Hypotension
     Dosage: 10 MILLIGRAM, TID
     Route: 065
  2. PROLIA [Concomitant]
     Active Substance: DENOSUMAB
     Indication: Osteoporosis
     Dosage: 1 DOSAGE FORM, EVERY 6 MONTHS
     Route: 065

REACTIONS (3)
  - Loss of consciousness [Unknown]
  - Product substitution issue [Unknown]
  - Drug ineffective [Unknown]
